FAERS Safety Report 8343571-5 (Version None)
Quarter: 2012Q2

REPORT INFORMATION
  Report Type: 
  Country: None (occurrence: None)
  Receive Date: 20120508
  Receipt Date: 20100524
  Transmission Date: 20120825
  Serious: Yes (Other)
  Sender: FDA-Public Use
  Company Number: US-TEVA-2010002883

PATIENT
  Sex: Male

DRUGS (6)
  1. DEXAMETHASONE [Concomitant]
     Route: 040
  2. ALLOPURINOL [Suspect]
     Indication: TUMOUR LYSIS SYNDROME
  3. RITUXAN [Suspect]
     Indication: CHRONIC LYMPHOCYTIC LEUKAEMIA
     Dates: start: 20100428, end: 20100428
  4. CORTEF [Concomitant]
  5. TREANDA [Suspect]
     Indication: CHRONIC LYMPHOCYTIC LEUKAEMIA
     Route: 041
     Dates: start: 20100428, end: 20100429
  6. DILTIAZEM [Concomitant]

REACTIONS (1)
  - RASH GENERALISED [None]
